FAERS Safety Report 9847242 (Version 1)
Quarter: 2014Q1

REPORT INFORMATION
  Report Type: Spontaneous
  Country: US (occurrence: US)
  Receive Date: 20140127
  Receipt Date: 20140127
  Transmission Date: 20141002
  Serious: Yes (Hospitalization)
  Sender: FDA-Public Use
  Company Number: US-DYAX CORP.-2013DX000179

PATIENT
  Age: 55 Year
  Sex: Female
  Weight: 81.72 kg

DRUGS (17)
  1. KALBITOR [Suspect]
     Indication: HEREDITARY ANGIOEDEMA
     Route: 058
     Dates: start: 20130522, end: 20130522
  2. KALBITOR [Suspect]
     Route: 058
     Dates: start: 20110723
  3. OXANDRIN [Concomitant]
     Indication: SWELLING
     Route: 048
  4. SYNTHROID [Concomitant]
     Indication: HYPOTHYROIDISM
     Route: 048
  5. TOPAMAX [Concomitant]
     Indication: CONVULSION
     Route: 048
     Dates: start: 2005
  6. NORVASC [Concomitant]
     Indication: HYPERTENSION
     Route: 048
  7. PRAVASTATIN [Concomitant]
     Indication: BLOOD CHOLESTEROL ABNORMAL
     Route: 048
  8. FLONASE [Concomitant]
     Indication: HYPERSENSITIVITY
     Route: 065
  9. ZYRTEC [Concomitant]
     Indication: HYPERSENSITIVITY
     Route: 048
  10. ALLERGY MEDICATION [Concomitant]
     Indication: SEASONAL ALLERGY
     Dates: start: 20110120
  11. MULTIVITAMIN [Concomitant]
     Indication: PRODUCT USED FOR UNKNOWN INDICATION
     Route: 048
  12. EPIPEN 2-PAK [Concomitant]
     Indication: PRODUCT USED FOR UNKNOWN INDICATION
  13. BENADRYL [Concomitant]
     Indication: PRODUCT USED FOR UNKNOWN INDICATION
     Route: 065
  14. TRANXENE-T [Concomitant]
     Indication: PRODUCT USED FOR UNKNOWN INDICATION
     Route: 065
  15. TEARS AGAIN SOLUTION [Concomitant]
     Indication: PRODUCT USED FOR UNKNOWN INDICATION
     Route: 065
  16. CYMBALTA [Concomitant]
     Indication: PRODUCT USED FOR UNKNOWN INDICATION
     Route: 065
  17. PATANOL 0.1% SOLUTION [Concomitant]
     Indication: PRODUCT USED FOR UNKNOWN INDICATION
     Route: 047

REACTIONS (7)
  - Hereditary angioedema [Recovered/Resolved]
  - Ear congestion [Unknown]
  - Urine output decreased [Unknown]
  - Rash [Unknown]
  - Blood glucose increased [Unknown]
  - Pain [Unknown]
  - Diarrhoea [Unknown]
